FAERS Safety Report 12716611 (Version 1)
Quarter: 2016Q3

REPORT INFORMATION
  Report Type: Spontaneous
  Country: US (occurrence: US)
  Receive Date: 20160906
  Receipt Date: 20160906
  Transmission Date: 20161109
  Serious: Yes (Hospitalization, Other)
  Sender: FDA-Public Use
  Company Number: US-009507513-1608USA015791

PATIENT
  Sex: Male

DRUGS (1)
  1. KEYTRUDA [Suspect]
     Active Substance: PEMBROLIZUMAB
     Indication: PROSTATE CANCER STAGE IV
     Dosage: UNK
     Route: 051
     Dates: start: 20160815

REACTIONS (4)
  - Product use issue [Unknown]
  - Bladder obstruction [Unknown]
  - Renal disorder [Unknown]
  - Sepsis [Unknown]

NARRATIVE: CASE EVENT DATE: 201608
